FAERS Safety Report 9187862 (Version 1)
Quarter: 2013Q1

REPORT INFORMATION
  Report Type: Spontaneous
  Country: US (occurrence: US)
  Receive Date: 20130325
  Receipt Date: 20130325
  Transmission Date: 20140127
  Serious: No
  Sender: FDA-Public Use
  Company Number: US-MYLANLABS-2012S1013403

PATIENT
  Age: 41 Year
  Sex: Female

DRUGS (9)
  1. FENTANYL TRANSDERMAL SYSTEM [Suspect]
     Indication: BACK PAIN
     Dosage: Q72H
     Route: 062
     Dates: start: 2008
  2. FENTANYL TRANSDERMAL SYSTEM [Suspect]
     Indication: NECK PAIN
     Dosage: Q72H
     Route: 062
     Dates: start: 2008
  3. FENTANYL TRANSDERMAL SYSTEM [Suspect]
     Indication: PAIN
     Dosage: Q72H
     Route: 062
     Dates: start: 2008
  4. FENTANYL TRANSDERMAL SYSTEM [Suspect]
     Indication: NERVE INJURY
     Dosage: Q72H
     Route: 062
     Dates: start: 2008
  5. PERCOCET [Concomitant]
     Indication: PAIN
  6. BACLOFEN [Concomitant]
     Indication: MYALGIA
  7. GABAPENTIN [Concomitant]
     Indication: NEURALGIA
  8. TOPAMAX [Concomitant]
     Indication: MIGRAINE
  9. ASPIRIN [Concomitant]

REACTIONS (7)
  - Overdose [Recovered/Resolved]
  - Dyspnoea [Recovered/Resolved]
  - Dizziness [Recovered/Resolved]
  - Hypoaesthesia [Recovered/Resolved]
  - Drug withdrawal syndrome [Recovered/Resolved]
  - Pruritus [Recovered/Resolved]
  - Disturbance in attention [Recovered/Resolved]
